FAERS Safety Report 16134317 (Version 1)
Quarter: 2019Q1

REPORT INFORMATION
  Report Type: Spontaneous
  Country: US (occurrence: US)
  Receive Date: 20190329
  Receipt Date: 20190329
  Transmission Date: 20190418
  Serious: No
  Sender: FDA-Public Use
  Company Number: US-BAYER-2019-057456

PATIENT
  Age: 6 Year
  Sex: Female

DRUGS (2)
  1. MIRALAX [Suspect]
     Active Substance: POLYETHYLENE GLYCOL 3350
     Dosage: 0.5 UNK
     Dates: start: 2009
  2. MIRALAX [Suspect]
     Active Substance: POLYETHYLENE GLYCOL 3350
     Dosage: 0.5 DF, QD
     Route: 048
     Dates: start: 20190318

REACTIONS (5)
  - Incorrect product administration duration [None]
  - Poor quality product administered [Recovered/Resolved]
  - Underdose [None]
  - Product use issue [None]
  - Product taste abnormal [Recovered/Resolved]

NARRATIVE: CASE EVENT DATE: 2009
